FAERS Safety Report 20938813 (Version 1)
Quarter: 2022Q2

REPORT INFORMATION
  Report Type: Other
  Country: None (occurrence: JP)
  Receive Date: 20220609
  Receipt Date: 20220609
  Transmission Date: 20220720
  Serious: Yes (Other)
  Sender: FDA-Public Use
  Company Number: JP-B.Braun Medical Inc.-2129641

PATIENT
  Age: 46 Year
  Sex: Male

DRUGS (4)
  1. LIDOCAINE HYDROCHLORIDE AND DEXTROSE [Suspect]
     Active Substance: DEXTROSE\LIDOCAINE HYDROCHLORIDE
  2. AMIODARONE [Suspect]
     Active Substance: AMIODARONE
  3. MAGNESIUM [Suspect]
     Active Substance: MAGNESIUM
  4. LANDIOLOL [Suspect]
     Active Substance: LANDIOLOL

REACTIONS (1)
  - Drug ineffective [Unknown]
